FAERS Safety Report 8138291-6 (Version None)
Quarter: 2012Q1

REPORT INFORMATION
  Report Type: 
  Country: None (occurrence: None)
  Receive Date: 20120215
  Receipt Date: 20120207
  Transmission Date: 20120608
  Serious: Yes (Other)
  Sender: FDA-Public Use
  Company Number: CN-JNJFOC-20120205177

PATIENT
  Age: 29 Year
  Sex: Female

DRUGS (5)
  1. RISPERDAL [Suspect]
     Indication: SCHIZOPHRENIA
     Route: 048
     Dates: start: 20030801
  2. DIAZEPAM [Concomitant]
     Indication: INSOMNIA
     Route: 048
     Dates: start: 20030901, end: 20110501
  3. RISPERDAL [Suspect]
     Route: 048
     Dates: start: 20110501
  4. DIAZEPAM [Concomitant]
     Route: 048
     Dates: start: 20110501
  5. RISPERDAL [Suspect]
     Route: 048
     Dates: start: 20030801, end: 20110501

REACTIONS (5)
  - RESTLESSNESS [None]
  - SUICIDAL IDEATION [None]
  - DYSPHORIA [None]
  - INSOMNIA [None]
  - SUSPICIOUSNESS [None]
